FAERS Safety Report 7576112-0 (Version None)
Quarter: 2011Q2

REPORT INFORMATION
  Report Type: 
  Country: None (occurrence: None)
  Receive Date: 20110623
  Receipt Date: 20110623
  Transmission Date: 20111010
  Serious: No
  Sender: FDA-Public Use
  Company Number: None

PATIENT
  Sex: Female
  Weight: 74.8435 kg

DRUGS (1)
  1. ORENCIA [Suspect]
     Dates: start: 20101101, end: 20110506

REACTIONS (1)
  - PERICARDITIS [None]
